FAERS Safety Report 7053577-4 (Version None)
Quarter: 2010Q4

REPORT INFORMATION
  Report Type: 
  Country: None (occurrence: None)
  Receive Date: 20101020
  Receipt Date: 20101014
  Transmission Date: 20110411
  Serious: Yes (Hospitalization)
  Sender: FDA-Public Use
  Company Number: DE-ROCHE-730711

PATIENT
  Sex: Female
  Weight: 78 kg

DRUGS (9)
  1. BEVACIZUMAB [Suspect]
     Dosage: DOSE:  165 MG. LAST DOES PRIOR TO SAE 06 SEP 2010
     Route: 042
     Dates: start: 20100906
  2. TRASTUZUMAB [Suspect]
     Dosage: LOADING DOSE, TOTAL DOSE: 624 MG, FORM: VIAL.
     Route: 042
     Dates: start: 20100610
  3. TRASTUZUMAB [Suspect]
     Dosage: MAINTENANCE DOSE. DATE OF LAST DOSE PRIOR TO SAE 27 JULY 2010.
     Route: 042
     Dates: start: 20100701
  4. FLUOROURACIL [Suspect]
     Dosage: TOTAL DOSE: 1104 MG, FORM VIAL, LAST DOSE PRIOR TO SAE 06 SEPTEMBER 2010.
     Route: 042
     Dates: start: 20100906
  5. DOCETAXEL [Suspect]
     Dosage: TOTAL DOSE: 184 MG, FORM VIAL , LAST DOSE PRIOR TO SAE ON 22 JULY 2010.
     Route: 042
     Dates: start: 20100610
  6. EPIRUBICIN [Suspect]
     Dosage: TOAL DOSE: 165 MG, FORM VIAL , LAST DOSE PRIOR TO SAE ON 06 SEP 2010
     Route: 042
     Dates: start: 20100906
  7. CYCLOPHOSPHAMIDE [Suspect]
     Dosage: TOTAL DOSE: 1104 MG, FORM VIALS, TOTAL DOSE PRIOR TO SAE 06 SEP 2010
     Route: 042
     Dates: start: 20100906
  8. NEXIUM [Concomitant]
  9. ASPIRIN [Concomitant]

REACTIONS (1)
  - GENERAL PHYSICAL HEALTH DETERIORATION [None]
